FAERS Safety Report 11010698 (Version 2)
Quarter: 2019Q2

REPORT INFORMATION
  Report Type: Spontaneous
  Country: US (occurrence: US)
  Receive Date: 20150410
  Receipt Date: 20190613
  Transmission Date: 20190711
  Serious: Yes (Death, Other)
  Sender: FDA-Public Use
  Company Number: US-ASTRAZENECA-2015SE31654

PATIENT
  Age: 24655 Day
  Sex: Female

DRUGS (15)
  1. BYETTA [Suspect]
     Active Substance: EXENATIDE
     Route: 065
     Dates: start: 20110713, end: 20111028
  2. EVISTA [Concomitant]
     Active Substance: RALOXIFENE HYDROCHLORIDE
     Dosage: 50.0MG UNKNOWN
     Dates: start: 20071026
  3. LOSARTAN. [Concomitant]
     Active Substance: LOSARTAN
     Dosage: 100.0MG UNKNOWN
     Dates: start: 20120315
  4. LEXAPRO [Concomitant]
     Active Substance: ESCITALOPRAM OXALATE
  5. LIPITOR [Concomitant]
     Active Substance: ATORVASTATIN CALCIUM
     Dosage: 50.0MG UNKNOWN
     Dates: start: 20090605
  6. BENAZEPRIL [Concomitant]
     Active Substance: BENAZEPRIL HYDROCHLORIDE
     Dosage: 20.0MG UNKNOWN
     Dates: start: 20120925
  7. AZITHROMYCIN ANHYDROUS. [Concomitant]
     Active Substance: AZITHROMYCIN ANHYDROUS
     Dosage: 250.0MG UNKNOWN
     Dates: start: 20120128
  8. LANTUS [Concomitant]
     Active Substance: INSULIN GLARGINE
     Dates: start: 20120105
  9. AMLODIPINE [Concomitant]
     Active Substance: AMLODIPINE BESYLATE
     Dosage: 5.0MG UNKNOWN
     Dates: start: 20120321
  10. BYETTA [Suspect]
     Active Substance: EXENATIDE
     Route: 065
     Dates: start: 20070525
  11. FUROSEMIDE. [Concomitant]
     Active Substance: FUROSEMIDE
     Dosage: 40.0MG UNKNOWN
     Dates: start: 20120321
  12. SYNTHROID [Concomitant]
     Active Substance: LEVOTHYROXINE SODIUM
     Dosage: 50.0UG UNKNOWN
     Dates: start: 20070827
  13. BYETTA [Suspect]
     Active Substance: EXENATIDE
     Route: 065
     Dates: start: 20070525, end: 20110725
  14. BYETTA [Suspect]
     Active Substance: EXENATIDE
     Route: 065
     Dates: start: 20120501, end: 20120504
  15. APIDRA [Concomitant]
     Active Substance: INSULIN GLULISINE
     Dates: start: 20120321

REACTIONS (4)
  - Pancreatic carcinoma [Unknown]
  - Pancreatitis chronic [Unknown]
  - Pancreatic carcinoma metastatic [Fatal]
  - Adenocarcinoma pancreas [Unknown]

NARRATIVE: CASE EVENT DATE: 20120404
